FAERS Safety Report 8804994 (Version 2)
Quarter: 2015Q1

REPORT INFORMATION
  Report Type: Report from Study
  Country: US (occurrence: US)
  Receive Date: 20120924
  Receipt Date: 20150313
  Transmission Date: 20150721
  Serious: Yes (Death)
  Sender: FDA-Public Use
  Company Number: US-ROCHE-1123126

PATIENT
  Sex: Female
  Weight: 53 kg

DRUGS (20)
  1. XELODA [Suspect]
     Active Substance: CAPECITABINE
     Indication: PRODUCT USED FOR UNKNOWN INDICATION
     Route: 065
  2. FLUOROURACIL. [Concomitant]
     Active Substance: FLUOROURACIL
  3. ZOMETA [Concomitant]
     Active Substance: ZOLEDRONIC ACID
     Route: 065
  4. IRINOTECAN [Concomitant]
     Active Substance: IRINOTECAN
     Route: 042
  5. TAXOTERE [Concomitant]
     Active Substance: DOCETAXEL
  6. GEMZAR [Concomitant]
     Active Substance: GEMCITABINE HYDROCHLORIDE
  7. FOLINIC ACID [Concomitant]
     Active Substance: LEUCOVORIN
  8. AVASTIN [Suspect]
     Active Substance: BEVACIZUMAB
     Indication: PANCREATIC CARCINOMA
     Dosage: THERAPIES RECEIVED ON 21/JAN/2008, 03/DEC/2008, 07/JAN/2009, 04/MAR/2009
     Route: 042
  9. IRINOTECAN [Concomitant]
     Active Substance: IRINOTECAN
     Route: 042
  10. AVASTIN [Suspect]
     Active Substance: BEVACIZUMAB
     Route: 042
  11. NEUPOGEN [Concomitant]
     Active Substance: FILGRASTIM
     Route: 065
  12. IRINOTECAN [Concomitant]
     Active Substance: IRINOTECAN
     Route: 042
  13. ZOMETA [Concomitant]
     Active Substance: ZOLEDRONIC ACID
     Route: 042
  14. OXALIPLATIN. [Concomitant]
     Active Substance: OXALIPLATIN
  15. AVASTIN [Suspect]
     Active Substance: BEVACIZUMAB
     Indication: METASTASES TO LIVER
     Route: 042
  16. ALOXI [Concomitant]
     Active Substance: PALONOSETRON HYDROCHLORIDE
     Route: 042
  17. IRINOTECAN [Concomitant]
     Active Substance: IRINOTECAN
     Route: 042
  18. IRINOTECAN [Concomitant]
     Active Substance: IRINOTECAN
     Route: 042
  19. ATROPINE [Concomitant]
     Active Substance: ATROPINE
     Route: 042
  20. DECADRON [Concomitant]
     Active Substance: DEXAMETHASONE
     Route: 065

REACTIONS (5)
  - Death [Fatal]
  - Oropharyngeal pain [Unknown]
  - Fatigue [Unknown]
  - Off label use [Unknown]
  - Pain in extremity [Unknown]
